FAERS Safety Report 23200098 (Version 1)
Quarter: 2023Q4

REPORT INFORMATION
  Report Type: Spontaneous
  Country: GB (occurrence: GB)
  Receive Date: 20231117
  Receipt Date: 20231117
  Transmission Date: 20240109
  Serious: Yes (Other)
  Sender: FDA-Public Use
  Company Number: GB-MHRA-TPP18567817C8174068YC1699292276004

PATIENT
  Age: 78 Year
  Sex: Male
  Weight: 80 kg

DRUGS (10)
  1. MIRTAZAPINE [Suspect]
     Active Substance: MIRTAZAPINE
     Indication: Product used for unknown indication
     Dosage: 15 MILLIGRAM
     Route: 048
     Dates: start: 20230905
  2. RIVASTIGMINE [Concomitant]
     Active Substance: RIVASTIGMINE
     Indication: Product used for unknown indication
     Dosage: 1 DOSAGE FORM, ONCE A DAY TO BE APPLIED
     Route: 065
     Dates: start: 20230703
  3. ATORVASTATIN [Concomitant]
     Active Substance: ATORVASTATIN
     Indication: Blood cholesterol increased
     Dosage: 1 DOSAGE FORM, ONCE A DAY
     Route: 065
     Dates: start: 20230314
  4. CLONAZEPAM [Concomitant]
     Active Substance: CLONAZEPAM
     Indication: Product used for unknown indication
     Dosage: 1 DOSAGE FORM, ONCE A DAY (AT NIGHT, CAN BE INCREASED EVERY 3DAYS)
     Route: 065
     Dates: start: 20230314
  5. CLOPIDOGREL [Concomitant]
     Active Substance: CLOPIDOGREL BISULFATE
     Indication: Product used for unknown indication
     Dosage: 1 DOSAGE FORM, ONCE A DAY
     Route: 065
     Dates: start: 20230314
  6. CYCLIZINE [Concomitant]
     Active Substance: CYCLIZINE
     Indication: Product used for unknown indication
     Dosage: 1 DOSAGE FORM 30 MINUTES BEFORE MEALS
     Route: 065
     Dates: start: 20231002
  7. DOCUSATE SODIUM [Concomitant]
     Active Substance: DOCUSATE SODIUM
     Indication: Constipation
     Dosage: TAKE 1-2  TABLETS TWICE DAILY
     Route: 065
     Dates: start: 20230314
  8. LANSOPRAZOLE [Concomitant]
     Active Substance: LANSOPRAZOLE
     Indication: Product used for unknown indication
     Dosage: 1 DOSAGE FORM, DAILY ( IN ADDITION TO 15MG IN BLISTER PACK)
     Route: 065
     Dates: start: 20230314
  9. LATANOPROST [Concomitant]
     Active Substance: LATANOPROST
     Indication: Product used for unknown indication
     Dosage: 1 GTT DROPS, ONCE A DAY TO EACH EYE
     Route: 065
     Dates: start: 20230817
  10. POLYETHYLENE GLYCOL 3350\POTASSIUM CHLORIDE\SODIUM BICARBONATE\SODIUM [Concomitant]
     Active Substance: POLYETHYLENE GLYCOL 3350\POTASSIUM CHLORIDE\SODIUM BICARBONATE\SODIUM CHLORIDE
     Indication: Constipation
     Dosage: 2 DOSAGE FORM, TWO TIMES A DAY (TWO IN AM AND TWO IN PM IF NEEDED)
     Route: 065
     Dates: start: 20230314

REACTIONS (2)
  - Confusional state [Recovered/Resolved]
  - Disorientation [Unknown]
